FAERS Safety Report 16287047 (Version 1)
Quarter: 2019Q2

REPORT INFORMATION
  Report Type: Spontaneous
  Country: US (occurrence: US)
  Receive Date: 20190508
  Receipt Date: 20190508
  Transmission Date: 20190711
  Serious: Yes (Hospitalization, Other)
  Sender: FDA-Public Use
  Company Number: US-PFIZER INC-2019192010

PATIENT
  Age: 61 Year
  Sex: Female

DRUGS (2)
  1. IBRANCE [Suspect]
     Active Substance: PALBOCICLIB
     Indication: BREAST CANCER FEMALE
     Dosage: 125 MG, CYCLIC (21 DAY CYCLE OF LBRANCE 125 MG DAILY)
  2. IBRANCE [Suspect]
     Active Substance: PALBOCICLIB
     Dosage: 100 MG, CYCLIC(TAKE1 CAPSULE BY MOUTH DAILY FOR DAYS 1-21 EVERY28 DAYS)
     Route: 048

REACTIONS (6)
  - Candida infection [Recovered/Resolved]
  - Hypersomnia [Unknown]
  - Neoplasm progression [Unknown]
  - Diplopia [Unknown]
  - Arteriovenous malformation [Unknown]
  - Pneumonia [Recovered/Resolved]
